FAERS Safety Report 5925466-7 (Version None)
Quarter: 2008Q4

REPORT INFORMATION
  Report Type: 
  Country: None (occurrence: None)
  Receive Date: 20081021
  Receipt Date: 20081013
  Transmission Date: 20090506
  Serious: Yes (Other)
  Sender: FDA-Public Use
  Company Number: US-JNJFOC-20080906016

PATIENT
  Age: 49 Year
  Sex: Male
  Weight: 108.86 kg

DRUGS (2)
  1. MOTRIN IB [Suspect]
     Indication: JOINT INJURY
     Route: 048
  2. MOTRIN IB [Suspect]
     Indication: LIMB INJURY
     Route: 048

REACTIONS (2)
  - BLOOD URINE PRESENT [None]
  - EXPIRED DRUG ADMINISTERED [None]
